FAERS Safety Report 9457707 (Version 2)
Quarter: 2013Q3

REPORT INFORMATION
  Report Type: Spontaneous
  Country: US (occurrence: None)
  Receive Date: 20130809
  Receipt Date: 20130919
  Transmission Date: 20140515
  Serious: Yes (Other)
  Sender: FDA-Public Use
  Company Number: AUR-APL-2013-06458

PATIENT
  Age: 74 Year
  Sex: Female
  Weight: 87.07 kg

DRUGS (31)
  1. SIMVASTATIN [Suspect]
     Indication: BLOOD CHOLESTEROL
  2. SIMVASTATIN [Suspect]
     Indication: BLOOD CHOLESTEROL INCREASED
  3. NEURONTIN (GABAPENTIN) [Suspect]
     Indication: NEUROPATHY PERIPHERAL
     Route: 048
  4. NEURONTIN (GABAPENTIN) [Suspect]
     Indication: FIBROMYALGIA
     Route: 048
  5. NEURONTIN (GABAPENTIN) [Suspect]
     Route: 048
  6. NEURONTIN (GABAPENTIN) [Suspect]
     Route: 048
  7. ZOLOFT [Suspect]
     Indication: DEPRESSION
     Dates: start: 2010
  8. DETROL LA [Suspect]
     Indication: HYPERTONIC BLADDER
     Route: 048
  9. DETROL LA [Suspect]
     Indication: URINARY INCONTINENCE
     Route: 048
  10. TRAMADOL HCL [Suspect]
     Indication: BACK PAIN
  11. OMACOR [Suspect]
     Indication: BLOOD CHOLESTEROL ABNORMAL
     Route: 048
  12. MYRBETRIQ [Suspect]
     Indication: HYPERTONIC BLADDER
  13. MYRBETRIQ [Suspect]
     Indication: URINARY INCONTINENCE
  14. VITAMINS [Suspect]
     Indication: PRODUCT USED FOR UNKNOWN INDICATION
  15. VITAMINS [Suspect]
     Indication: URINARY INCONTINENCE
  16. METHOCARBAMOL [Concomitant]
  17. ISOSORBIDE MONONITRATE (ISOSORBIDE MONONITRATE) [Concomitant]
  18. LYSINE (LYSINE) [Concomitant]
  19. OMEPRAZOLE (OMEPRAZOLE) [Concomitant]
  20. COZAAR (LOSARTAN POTASSIUM) [Concomitant]
  21. ZYRTEC (CETIRIZINE HYDROCHLORIDE) [Concomitant]
  22. OXYBUTYNIN (OXYBUTYNIN) [Concomitant]
  23. SPIRONOLACTONE (SPIRONOLACTONE) [Concomitant]
  24. PLAVIX (CLOPIDOGREL BISULFATE) [Concomitant]
  25. FUROSEMIDE (FUROSEMIDE) [Concomitant]
  26. SYNTHROID (LEVOTHYROXINE SODIUM) [Concomitant]
  27. BABY ASPIRIN (ACETYLSALICYLIC ACID) [Concomitant]
  28. ATENOLOL (ATENOLOL) [Concomitant]
  29. FENOFIBRATE (FENOFIBRATE) [Concomitant]
  30. CALCIUM (CALCIUM) [Concomitant]
  31. SERTRALINE HYDROCHLORIDE (SERTRALINE HYDROCHLORIDE) [Concomitant]

REACTIONS (17)
  - Pain [None]
  - Arthritis [None]
  - Urinary incontinence [None]
  - Fall [None]
  - Spinal fracture [None]
  - Neuropathy peripheral [None]
  - Intervertebral disc protrusion [None]
  - Flatulence [None]
  - Diarrhoea [None]
  - Alopecia [None]
  - Nerve compression [None]
  - Fibromyalgia [None]
  - Blood cholesterol increased [None]
  - Blood triglycerides increased [None]
  - Blood glucose increased [None]
  - Vertigo [None]
  - Dizziness [None]
